FAERS Safety Report 8405643-6 (Version None)
Quarter: 2012Q2

REPORT INFORMATION
  Report Type: 
  Country: None (occurrence: None)
  Receive Date: 20120604
  Receipt Date: 20120524
  Transmission Date: 20120825
  Serious: No
  Sender: FDA-Public Use
  Company Number: US-BIOGENIDEC-2012BI019219

PATIENT
  Age: 41 Year
  Sex: Male

DRUGS (2)
  1. TYSABRI [Suspect]
     Indication: MULTIPLE SCLEROSIS
     Route: 042
     Dates: start: 20111006, end: 20120101
  2. TYSABRI [Suspect]
     Route: 042
     Dates: start: 20120518

REACTIONS (4)
  - HYPERSENSITIVITY [None]
  - FALL [None]
  - CONTUSION [None]
  - MULTIPLE SCLEROSIS RELAPSE [None]
